FAERS Safety Report 5511036-1 (Version None)
Quarter: 2007Q4

REPORT INFORMATION
  Report Type: 
  Country: None (occurrence: None)
  Receive Date: 20071109
  Receipt Date: 20071029
  Transmission Date: 20080405
  Serious: Yes (Other)
  Sender: FDA-Public Use
  Company Number: NL-JNJFOC-20071007472

PATIENT
  Sex: Female

DRUGS (6)
  1. DAKTACORT [Suspect]
     Route: 065
  2. DAKTACORT [Suspect]
     Indication: SEBORRHOEIC DERMATITIS
     Route: 065
  3. KETOCONAZOLE [Suspect]
     Indication: DERMATITIS
     Route: 061
  4. KETOCONAZOLE [Suspect]
     Indication: SEBORRHOEIC DERMATITIS
     Route: 061
  5. UNSPECIFIED EYE DROPS [Suspect]
     Indication: DRUG USE FOR UNKNOWN INDICATION
     Route: 047
  6. ROZEX [Suspect]
     Indication: DERMATITIS
     Route: 061

REACTIONS (3)
  - LENTICULAR OPACITIES [None]
  - PHOTOPSIA [None]
  - VISUAL DISTURBANCE [None]
